FAERS Safety Report 4731523-3 (Version None)
Quarter: 2005Q3

REPORT INFORMATION
  Report Type: 
  Country: None (occurrence: None)
  Receive Date: 20050802
  Receipt Date: 20050728
  Transmission Date: 20060218
  Serious: Yes (Hospitalization)
  Sender: FDA-Public Use
  Company Number: FR-MERCK-0507FRA00096

PATIENT
  Age: 50 Year
  Sex: Female

DRUGS (4)
  1. NOROXIN [Suspect]
     Indication: YERSINIA INFECTION
     Route: 048
     Dates: start: 20050715, end: 20050724
  2. NOROXIN [Suspect]
     Route: 048
     Dates: start: 20050727, end: 20050728
  3. TRIMEBUTINE MALEATE [Concomitant]
     Indication: GASTROINTESTINAL DISORDER
     Route: 065
  4. CLONAZEPAM [Concomitant]
     Route: 048

REACTIONS (1)
  - VASCULAR PURPURA [None]
